FAERS Safety Report 13141973 (Version 1)
Quarter: 2017Q1

REPORT INFORMATION
  Report Type: Spontaneous
  Country: US (occurrence: US)
  Receive Date: 20170123
  Receipt Date: 20170123
  Transmission Date: 20170428
  Serious: Yes (Disabling)
  Sender: FDA-Public Use
  Company Number: None

PATIENT
  Age: 5 Year
  Sex: Male
  Weight: 22.05 kg

DRUGS (3)
  1. DAILY PROBIOTIC [Concomitant]
  2. MIRALAX [Suspect]
     Active Substance: POLYETHYLENE GLYCOL 3350
     Indication: CONSTIPATION
     Route: 048
     Dates: start: 20120530, end: 20161201
  3. DIALY MULTIVITAMIN [Concomitant]

REACTIONS (1)
  - Aggression [None]

NARRATIVE: CASE EVENT DATE: 20161201
